FAERS Safety Report 13486665 (Version 2)
Quarter: 2018Q2

REPORT INFORMATION
  Report Type: Spontaneous
  Country: US (occurrence: US)
  Receive Date: 20170426
  Receipt Date: 20180409
  Transmission Date: 20180711
  Serious: No
  Sender: FDA-Public Use
  Company Number: US-TARO-2016TAR00867

PATIENT
  Age: 53 Year
  Sex: Female
  Weight: 65.76 kg

DRUGS (8)
  1. TIZANIDINE. [Concomitant]
     Active Substance: TIZANIDINE
     Dosage: 2 MG, 2X/DAY
  2. VALSARTAN. [Concomitant]
     Active Substance: VALSARTAN
     Dosage: UNK, 1X/DAY
  3. ETODOLAC TABLETS 500 MG [Suspect]
     Active Substance: ETODOLAC
     Indication: INTERVERTEBRAL DISC PROTRUSION
     Dosage: 500 MG, 2X/DAY
     Route: 048
  4. ETODOLAC TABLETS 500 MG [Suspect]
     Active Substance: ETODOLAC
     Indication: ARTHRITIS
     Dosage: 500 MG, 3X/DAY
     Route: 048
  5. REBIF [Concomitant]
     Active Substance: INTERFERON BETA-1A
  6. SERTRALINE [Concomitant]
     Active Substance: SERTRALINE HYDROCHLORIDE
     Dosage: 100 MG, 2X/DAY
  7. GABAPENTIN. [Concomitant]
     Active Substance: GABAPENTIN
     Dosage: 300 MG, 2X/DAY
  8. UNSPECIFIED MULTIVITAMIN [Concomitant]
     Dosage: UNK, 1X/DAY

REACTIONS (3)
  - Arthropathy [Unknown]
  - Drug ineffective [Not Recovered/Not Resolved]
  - Arthralgia [Not Recovered/Not Resolved]

NARRATIVE: CASE EVENT DATE: 201601
